FAERS Safety Report 14543496 (Version 3)
Quarter: 2018Q1

REPORT INFORMATION
  Report Type: Spontaneous
  Country: FR (occurrence: FR)
  Receive Date: 20180216
  Receipt Date: 20180315
  Transmission Date: 20180509
  Serious: Yes (Other)
  Sender: FDA-Public Use
  Company Number: FR-BIOGEN-2018BV000036

PATIENT
  Weight: 98 kg

DRUGS (1)
  1. ELOCTA [Suspect]
     Active Substance: EFMOROCTOCOG ALFA
     Indication: FACTOR VIII DEFICIENCY
     Dosage: ONCE EVERY 8-10 DAYS
     Route: 042
     Dates: start: 20170628

REACTIONS (1)
  - Multiple sclerosis relapse [Recovered/Resolved]
